FAERS Safety Report 8484710-5 (Version None)
Quarter: 2012Q3

REPORT INFORMATION
  Report Type: 
  Country: None (occurrence: None)
  Receive Date: 20120703
  Receipt Date: 20120509
  Transmission Date: 20120928
  Serious: No
  Sender: FDA-Public Use
  Company Number: US-TEVA-337704USA

PATIENT
  Sex: Female
  Weight: 65.83 kg

DRUGS (1)
  1. NUVIGIL [Suspect]
     Indication: FATIGUE
     Dosage: 250 MILLIGRAM;
     Route: 048
     Dates: end: 20110501

REACTIONS (3)
  - RASH [None]
  - URTICARIA [None]
  - SWELLING [None]
